FAERS Safety Report 7325275-0 (Version None)
Quarter: 2011Q1

REPORT INFORMATION
  Report Type: 
  Country: None (occurrence: None)
  Receive Date: 20110302
  Receipt Date: 20110218
  Transmission Date: 20110831
  Serious: Yes (Other)
  Sender: FDA-Public Use
  Company Number: IT-US-EMD SERONO, INC.-7042964

PATIENT
  Sex: Male
  Weight: 1.9 kg

DRUGS (1)
  1. RECOMBINANT FOLLICLE STIMULATING HORMONE (RFSH) [Suspect]
     Indication: PRODUCT USED FOR UNKNOWN INDICATION
     Dosage: PRODUCT ADMINISTERED TO MOTHER IN FRAME OF IVF
     Route: 050

REACTIONS (2)
  - SMALL FOR DATES BABY [None]
  - WILDERVANCK SYNDROME [None]
